FAERS Safety Report 7230300-1 (Version None)
Quarter: 2011Q1

REPORT INFORMATION
  Report Type: 
  Country: None (occurrence: None)
  Receive Date: 20110118
  Receipt Date: 20110112
  Transmission Date: 20110831
  Serious: No
  Sender: FDA-Public Use
  Company Number: US-PFIZER INC-2011008349

PATIENT
  Sex: Female
  Weight: 64.9 kg

DRUGS (6)
  1. METRONIDAZOLE [Suspect]
     Indication: INFECTION
  2. LYRICA [Suspect]
     Indication: PAIN
     Dosage: UNK
     Route: 048
     Dates: start: 20090101
  3. PREMARIN [Suspect]
     Indication: POSTMENOPAUSE
     Dosage: 2 G, UNK
     Route: 067
     Dates: start: 20110108
  4. PREMARIN [Suspect]
     Indication: VULVOVAGINAL DISCOMFORT
  5. LYRICA [Suspect]
     Indication: PARAESTHESIA
  6. CLINDAMYCIN HYDROCHLORIDE [Concomitant]
     Indication: INFECTION

REACTIONS (6)
  - DISCOMFORT [None]
  - PARAESTHESIA [None]
  - SENSORY DISTURBANCE [None]
  - PAIN [None]
  - VULVOVAGINAL DISCOMFORT [None]
  - BACTERIAL INFECTION [None]
